FAERS Safety Report 11693493 (Version 1)
Quarter: 2015Q4

REPORT INFORMATION
  Report Type: Spontaneous
  Country: US (occurrence: US)
  Receive Date: 20151103
  Receipt Date: 20151103
  Transmission Date: 20160304
  Serious: Yes (Death, Other)
  Sender: FDA-Public Use
  Company Number: US-BAXTER-2015BAX058099

PATIENT
  Age: 36 Year
  Sex: Male

DRUGS (9)
  1. IFEX [Suspect]
     Active Substance: IFOSFAMIDE
     Indication: GENE MUTATION
     Dosage: DOSE REDUCED FOR 5TH CYCLE
     Route: 065
  2. ETOPOSIDE. [Suspect]
     Active Substance: ETOPOSIDE
     Indication: GENE MUTATION
     Dosage: DOSE REDUCED FOR 5TH CYCLE
     Route: 065
  3. DOCETAXEL. [Suspect]
     Active Substance: DOCETAXEL
     Indication: VERTEBRAL LESION
  4. IFEX [Suspect]
     Active Substance: IFOSFAMIDE
     Indication: NEOPLASM MALIGNANT
     Dosage: 4 CYCLES
     Route: 065
  5. DOCETAXEL. [Suspect]
     Active Substance: DOCETAXEL
     Indication: SOFT TISSUE MASS
     Dosage: LOW DOSE
     Route: 065
  6. CISPLATIN. [Suspect]
     Active Substance: CISPLATIN
     Indication: GENE MUTATION
     Dosage: DOSE REDUCED FOR 5TH CYCLE
     Route: 065
  7. DOCETAXEL. [Suspect]
     Active Substance: DOCETAXEL
     Indication: CENTRAL NERVOUS SYSTEM LESION
  8. CISPLATIN. [Suspect]
     Active Substance: CISPLATIN
     Indication: NEOPLASM MALIGNANT
     Dosage: 4 CYCLES
     Route: 065
  9. ETOPOSIDE. [Suspect]
     Active Substance: ETOPOSIDE
     Indication: NEOPLASM MALIGNANT
     Dosage: 4 CYCLES
     Route: 065

REACTIONS (10)
  - Central nervous system lesion [Not Recovered/Not Resolved]
  - Disease progression [Fatal]
  - Central nervous system mass [Not Recovered/Not Resolved]
  - Ototoxicity [Unknown]
  - Pneumonia [Unknown]
  - Pulmonary mass [Unknown]
  - Bone marrow failure [Unknown]
  - Vertebral lesion [Not Recovered/Not Resolved]
  - Condition aggravated [Not Recovered/Not Resolved]
  - Lymphadenopathy [Not Recovered/Not Resolved]
